FAERS Safety Report 9398560 (Version 4)
Quarter: 2017Q3

REPORT INFORMATION
  Report Type: Spontaneous
  Country: US (occurrence: US)
  Receive Date: 20130712
  Receipt Date: 20170922
  Transmission Date: 20171128
  Serious: Yes (Hospitalization, Other)
  Sender: FDA-Public Use
  Company Number: US-ELI_LILLY_AND_COMPANY-US201307000872

PATIENT
  Sex: Male

DRUGS (4)
  1. HUMULIN N [Suspect]
     Active Substance: INSULIN HUMAN
     Indication: PRODUCT USED FOR UNKNOWN INDICATION
     Dosage: 63 U, EACH MORNING
     Route: 065
     Dates: start: 1997
  2. INSULIN HUMAN [Suspect]
     Active Substance: INSULIN HUMAN
     Dosage: 25 U, DAILY
     Route: 065
     Dates: start: 1997
  3. HUMULIN N [Suspect]
     Active Substance: INSULIN HUMAN
     Dosage: 38 U, DAILY
     Route: 065
     Dates: start: 1997
  4. INSULIN HUMAN [Suspect]
     Active Substance: INSULIN HUMAN
     Indication: PRODUCT USED FOR UNKNOWN INDICATION
     Dosage: 17 U, EACH MORNING
     Route: 065
     Dates: start: 1997

REACTIONS (6)
  - Depressed mood [Unknown]
  - Fall [Unknown]
  - Cerebrovascular accident [Unknown]
  - Lower limb fracture [Unknown]
  - Incorrect dose administered [Unknown]
  - Transient ischaemic attack [Recovered/Resolved]

NARRATIVE: CASE EVENT DATE: 2014
